FAERS Safety Report 18941246 (Version 1)
Quarter: 2021Q1

REPORT INFORMATION
  Report Type: Spontaneous
  Country: JP (occurrence: JP)
  Receive Date: 20210225
  Receipt Date: 20210225
  Transmission Date: 20210420
  Serious: Yes (Other)
  Sender: FDA-Public Use
  Company Number: JP-PFIZER INC-2021139120

PATIENT
  Age: 88 Year
  Sex: Female

DRUGS (1)
  1. HALCION [Suspect]
     Active Substance: TRIAZOLAM
     Dosage: 1 DF, DAILY
     Route: 048

REACTIONS (3)
  - Insomnia [Unknown]
  - Presbyacusis [Unknown]
  - Incorrect product administration duration [Unknown]
